FAERS Safety Report 4768403-3 (Version None)
Quarter: 2005Q3

REPORT INFORMATION
  Report Type: 
  Country: None (occurrence: None)
  Receive Date: 20050914
  Receipt Date: 20050906
  Transmission Date: 20060218
  Serious: Yes (Hospitalization)
  Sender: FDA-Public Use
  Company Number: 200517831GDDC

PATIENT
  Age: 59 Year
  Sex: Female
  Weight: 95.25 kg

DRUGS (19)
  1. TAXOTERE [Suspect]
     Indication: BREAST CANCER
     Route: 042
     Dates: start: 20050705
  2. XELODA [Suspect]
     Indication: BREAST CANCER
     Route: 048
     Dates: start: 20050705
  3. MAXZIDE [Concomitant]
     Dosage: DOSE: UNK
     Route: 048
  4. COREG [Concomitant]
  5. ATACAND [Concomitant]
     Dosage: DOSE: UNK
  6. MULTIVITAMIN [Concomitant]
     Dosage: DOSE: UNK
     Route: 048
  7. HUMALOG [Concomitant]
     Dosage: DOSE: UNK
  8. ZOCOR [Concomitant]
  9. ASPIRIN [Concomitant]
  10. LANTUS [Concomitant]
     Dosage: DOSE: UNK
  11. POTASSIUM [Concomitant]
     Dosage: DOSE: UNK
     Dates: start: 20050830
  12. XANAX [Concomitant]
     Dosage: DOSE: UNK
     Dates: start: 20050705
  13. ZOFRAN [Concomitant]
     Dosage: DOSE: UNK
     Dates: start: 20050705
  14. COMPAZINE [Concomitant]
     Dosage: DOSE: UNK
     Dates: start: 20050705
  15. CALAN [Concomitant]
  16. FAMVIR [Concomitant]
     Dosage: DOSE: UNK
  17. REGLAN [Concomitant]
     Dosage: DOSE: UNK
  18. ANTIEMETICS AND ANTINAUSEANTS [Concomitant]
     Dosage: DOSE: UNK
  19. TUMS [Concomitant]
     Route: 048

REACTIONS (5)
  - DIZZINESS [None]
  - DIZZINESS POSTURAL [None]
  - ELECTROCARDIOGRAM QT PROLONGED [None]
  - HYPOKALAEMIA [None]
  - HYPOMAGNESAEMIA [None]
